FAERS Safety Report 4845161-5 (Version None)
Quarter: 2005Q4

REPORT INFORMATION
  Report Type: 
  Country: None (occurrence: None)
  Receive Date: 20051205
  Receipt Date: 20051128
  Transmission Date: 20060501
  Serious: Yes (Death, Other)
  Sender: FDA-Public Use
  Company Number: ES-BRISTOL-MYERS SQUIBB COMPANY-13203575

PATIENT
  Age: 17 Year
  Sex: Female

DRUGS (3)
  1. DIDANOSINE [Suspect]
  2. STAVUDINE [Suspect]
  3. AMPRENAVIR [Suspect]

REACTIONS (2)
  - GUILLAIN-BARRE SYNDROME [None]
  - LACTIC ACIDOSIS [None]
